FAERS Safety Report 5471016-1 (Version None)
Quarter: 2007Q3

REPORT INFORMATION
  Report Type: 
  Country: None (occurrence: None)
  Receive Date: 20070928
  Receipt Date: 20070921
  Transmission Date: 20080115
  Serious: Yes (Hospitalization)
  Sender: FDA-Public Use
  Company Number: B0483801A

PATIENT
  Age: 11 Year
  Sex: Male
  Weight: 35 kg

DRUGS (2)
  1. ARRANON [Suspect]
     Route: 042
     Dates: start: 20070416
  2. BAKTAR [Concomitant]
     Route: 048

REACTIONS (3)
  - HERPES ZOSTER [None]
  - PAIN IN EXTREMITY [None]
  - RASH ERYTHEMATOUS [None]
